FAERS Safety Report 25119640 (Version 1)
Quarter: 2025Q1

REPORT INFORMATION
  Report Type: Report from Study
  Country: US (occurrence: US)
  Receive Date: 20250325
  Receipt Date: 20250325
  Transmission Date: 20250409
  Serious: Yes (Life-Threatening, Hospitalization)
  Sender: MYLAN
  Company Number: US-MYLANLABS-2025M1025558

PATIENT
  Age: 3 Year
  Sex: Female

DRUGS (14)
  1. EPINEPHRINE [Suspect]
     Active Substance: EPINEPHRINE
     Indication: Kawasaki^s disease
  2. EPINEPHRINE [Suspect]
     Active Substance: EPINEPHRINE
     Indication: Shock
  3. EPINEPHRINE [Suspect]
     Active Substance: EPINEPHRINE
     Indication: Hypotension
  4. HYDROCORTISONE [Suspect]
     Active Substance: HYDROCORTISONE
     Indication: Kawasaki^s disease
  5. HYDROCORTISONE [Suspect]
     Active Substance: HYDROCORTISONE
     Indication: Shock
  6. HYDROCORTISONE [Suspect]
     Active Substance: HYDROCORTISONE
     Indication: Hypotension
  7. MILRINONE [Suspect]
     Active Substance: MILRINONE
     Indication: Kawasaki^s disease
  8. MILRINONE [Suspect]
     Active Substance: MILRINONE
     Indication: Shock
  9. METHYLPREDNISOLONE [Suspect]
     Active Substance: METHYLPREDNISOLONE
     Indication: Kawasaki^s disease
     Dosage: 2 MILLIGRAM/KILOGRAM, QD
  10. CYCLOSPORINE [Suspect]
     Active Substance: CYCLOSPORINE
     Indication: Kawasaki^s disease
     Dosage: 5 MILLIGRAM/KILOGRAM, QD
  11. IMMUNE GLOBULIN NOS [Suspect]
     Active Substance: IMMUNE GLOBULIN NOS
     Indication: Kawasaki^s disease
  12. INFLIXIMAB [Suspect]
     Active Substance: INFLIXIMAB
     Indication: Kawasaki^s disease
  13. ASPIRIN [Suspect]
     Active Substance: ASPIRIN
     Indication: Kawasaki^s disease
  14. ANAKINRA [Concomitant]
     Active Substance: ANAKINRA
     Indication: Kawasaki^s disease
     Dosage: 8 MILLIGRAM/KILOGRAM, BID

REACTIONS (3)
  - Posterior reversible encephalopathy syndrome [Recovered/Resolved]
  - Drug ineffective [Unknown]
  - Off label use [Unknown]
